FAERS Safety Report 5373443-X (Version None)
Quarter: 2007Q2

REPORT INFORMATION
  Report Type: 
  Country: None (occurrence: None)
  Receive Date: 20070626
  Receipt Date: 20070626
  Transmission Date: 20071010
  Serious: Yes (Other)
  Sender: FDA-Public Use
  Company Number: None

PATIENT
  Age: 30 Year
  Sex: Female

DRUGS (1)
  1. ZOMIG [Suspect]
     Indication: MIGRAINE
     Dosage: 1 TAB AT HA ONSET PO
     Route: 048

REACTIONS (7)
  - DIZZINESS [None]
  - DYSURIA [None]
  - HYPERTONIA [None]
  - LOSS OF CONSCIOUSNESS [None]
  - NECK PAIN [None]
  - SYNCOPE [None]
  - URINARY RETENTION [None]
